FAERS Safety Report 7003354-5 (Version None)
Quarter: 2010Q3

REPORT INFORMATION
  Report Type: 
  Country: None (occurrence: None)
  Receive Date: 20100920
  Receipt Date: 20100826
  Transmission Date: 20110219
  Serious: No
  Sender: FDA-Public Use
  Company Number: US-PFIZER INC-2010108050

PATIENT
  Sex: Female
  Weight: 77 kg

DRUGS (7)
  1. AROMASIN [Suspect]
     Indication: BREAST CANCER FEMALE
     Dosage: 25 MG, 1X/DAY
     Route: 048
     Dates: start: 20100501, end: 20100825
  2. LEVOXYL [Concomitant]
     Indication: THYROIDECTOMY
     Dosage: 12 UG, 1X/DAY
     Route: 048
  3. PREVACID [Concomitant]
     Indication: GASTROOESOPHAGEAL REFLUX DISEASE
     Dosage: 30 MG, 1X/DAY
  4. POTASSIUM [Concomitant]
     Dosage: UNK
  5. VITAMINS [Concomitant]
     Dosage: UNK
  6. VYTORIN [Concomitant]
     Dosage: UNK
     Route: 048
  7. BENAZEPRIL [Concomitant]
     Indication: HYPERTENSION
     Dosage: 10 MG, 1X/DAY

REACTIONS (7)
  - ABDOMINAL PAIN UPPER [None]
  - DECREASED APPETITE [None]
  - DIZZINESS [None]
  - FEELING ABNORMAL [None]
  - HYPERHIDROSIS [None]
  - NAUSEA [None]
  - NECK PAIN [None]
